FAERS Safety Report 10081471 (Version 2)
Quarter: 2014Q2

REPORT INFORMATION
  Report Type: Spontaneous
  Country: US (occurrence: US)
  Receive Date: 20140416
  Receipt Date: 20140509
  Transmission Date: 20141212
  Serious: No
  Sender: FDA-Public Use
  Company Number: US-PFIZER INC-2014105571

PATIENT
  Sex: Male

DRUGS (1)
  1. XALKORI [Suspect]
     Indication: NEOPLASM MALIGNANT
     Dosage: 200 MG, UNK

REACTIONS (2)
  - Disease progression [Unknown]
  - Neoplasm malignant [Unknown]
